FAERS Safety Report 7892560 (Version 6)
Quarter: 2012Q4

REPORT INFORMATION
  Report Type: 
  Country: US (occurrence: US)
  Receive Date: 20110411
  Receipt Date: 20120910
  Transmission Date: 20130627
  Serious: Yes (Hospitalization, Other)
  Sender: FDA-Public Use
  Company Number: US-US-EMD SERONO, INC.-7051843

PATIENT
  Age: 61 Year
  Sex: Female

DRUGS (5)
  1. REBIF [Suspect]
     Indication: MULTIPLE SCLEROSIS
     Route: 058
     Dates: start: 20090313, end: 201106
  2. ATENOLOL [Concomitant]
     Indication: HYPERTENSION
  3. HYZAAR [Concomitant]
     Indication: HYPERTENSION
  4. VESICARE [Concomitant]
     Indication: BLADDER DISORDER
  5. LIPITOR [Concomitant]
     Indication: HYPERLIPIDAEMIA

REACTIONS (4)
  - Lymphoma [Unknown]
  - Metastases to lymph nodes [Recovering/Resolving]
  - Transfusion [Unknown]
  - Vomiting [Unknown]
